FAERS Safety Report 7632438-3 (Version None)
Quarter: 2011Q3

REPORT INFORMATION
  Report Type: 
  Country: None (occurrence: None)
  Receive Date: 20110725
  Receipt Date: 20100908
  Transmission Date: 20111222
  Serious: No
  Sender: FDA-Public Use
  Company Number: US-BRISTOL-MYERS SQUIBB COMPANY-15277064

PATIENT
  Sex: Male

DRUGS (4)
  1. MULTAQ [Concomitant]
     Indication: HEART RATE IRREGULAR
  2. COUMADIN [Suspect]
     Dosage: 1DF= 2.5 TO 5MG.
  3. VALTURNA [Concomitant]
     Indication: BLOOD PRESSURE
  4. LEVOTHYROXINE SODIUM [Concomitant]
     Indication: HYPOTHYROIDISM

REACTIONS (1)
  - THYROID FUNCTION TEST ABNORMAL [None]
